FAERS Safety Report 8454663-4 (Version None)
Quarter: 2012Q2

REPORT INFORMATION
  Report Type: 
  Country: None (occurrence: None)
  Receive Date: 20120615
  Receipt Date: 20120615
  Transmission Date: 20120825
  Serious: Yes (Other)
  Sender: FDA-Public Use
  Company Number: None

PATIENT
  Age: 53 Year
  Sex: Female
  Weight: 64.4108 kg

DRUGS (1)
  1. LAMOTRIGINE [Suspect]
     Indication: BIPOLAR DISORDER
     Dosage: 25MG BEDTIME PO
     Route: 048
     Dates: start: 20120523, end: 20120603

REACTIONS (16)
  - HEADACHE [None]
  - FATIGUE [None]
  - RASH PAPULAR [None]
  - RASH GENERALISED [None]
  - INFLAMMATION [None]
  - CHILLS [None]
  - LYMPHADENOPATHY [None]
  - MALAISE [None]
  - PAIN [None]
  - THERMAL BURN [None]
  - PYREXIA [None]
  - MUSCULOSKELETAL STIFFNESS [None]
  - LYMPH NODE PAIN [None]
  - ASTHENIA [None]
  - OROPHARYNGEAL PAIN [None]
  - DRUG HYPERSENSITIVITY [None]
